FAERS Safety Report 6407121-2 (Version None)
Quarter: 2009Q4

REPORT INFORMATION
  Report Type: 
  Country: None (occurrence: None)
  Receive Date: 20091014
  Receipt Date: 20090706
  Transmission Date: 20100525
  Serious: Yes (Hospitalization, Other)
  Sender: FDA-Public Use
  Company Number: 8048733

PATIENT
  Age: 9 Year
  Sex: Male

DRUGS (4)
  1. LEVETIRACETAM [Suspect]
     Indication: EPILEPSY
     Dosage: 30 MG/KG/60 MG/KG/70 MG/KG
     Route: 048
  2. PHENOBARBITAL [Concomitant]
  3. MIDAZOLAM HCL [Concomitant]
  4. LORAZEPAM [Concomitant]

REACTIONS (7)
  - AGGRESSION [None]
  - AGITATION [None]
  - CONVULSION [None]
  - DYSARTHRIA [None]
  - GRAND MAL CONVULSION [None]
  - MOVEMENT DISORDER [None]
  - MYOCLONIC EPILEPSY [None]
